FAERS Safety Report 22059118 (Version 1)
Quarter: 2023Q1

REPORT INFORMATION
  Report Type: Spontaneous
  Country: GB (occurrence: GB)
  Receive Date: 20230303
  Receipt Date: 20230303
  Transmission Date: 20230418
  Serious: Yes (Other)
  Sender: FDA-Public Use
  Company Number: GB-MHRA-MED-202302271149175740-DJPHG

PATIENT
  Age: 50 Year
  Weight: 65 kg

DRUGS (1)
  1. ENTYVIO [Suspect]
     Active Substance: VEDOLIZUMAB
     Indication: Crohn^s disease
     Dosage: UNK
     Route: 065
     Dates: start: 20230119, end: 20230227

REACTIONS (1)
  - Erythema nodosum [Not Recovered/Not Resolved]

NARRATIVE: CASE EVENT DATE: 20230202
